FAERS Safety Report 5661383-8 (Version None)
Quarter: 2008Q1

REPORT INFORMATION
  Report Type: 
  Country: None (occurrence: None)
  Receive Date: 20080311
  Receipt Date: 20080304
  Transmission Date: 20080703
  Serious: Yes (Hospitalization)
  Sender: FDA-Public Use
  Company Number: BE-PFIZER INC-2008017951

PATIENT
  Sex: Female
  Weight: 53 kg

DRUGS (7)
  1. SU-011,248 [Suspect]
     Indication: BREAST CANCER
     Route: 048
  2. AMLOR [Concomitant]
     Dates: start: 20080218, end: 20080220
  3. RANITIDINE [Concomitant]
     Dates: start: 20071025, end: 20080220
  4. ZOLEDRONIC ACID [Concomitant]
  5. ALPRAZOLAM [Concomitant]
  6. TORSEMIDE [Concomitant]
  7. MEBEVERINE HYDROCHLORIDE [Concomitant]
     Dates: start: 20080117, end: 20080220

REACTIONS (1)
  - CONFUSIONAL STATE [None]
